FAERS Safety Report 8515915-2 (Version None)
Quarter: 2012Q3

REPORT INFORMATION
  Report Type: 
  Country: None (occurrence: None)
  Receive Date: 20120705
  Receipt Date: 20120620
  Transmission Date: 20120928
  Serious: Yes (Congenital Anomaly)
  Sender: FDA-Public Use
  Company Number: DSA_58185_2012

PATIENT

DRUGS (4)
  1. ALDOMET [Suspect]
     Indication: ESSENTIAL HYPERTENSION
     Dosage: (1.2 G QD TRANSPLACENTAL), (750 MG QD TRANSPLACENTAL)
     Route: 064
     Dates: start: 19930105
  2. ALDOMET [Suspect]
     Indication: ESSENTIAL HYPERTENSION
     Dosage: (1.2 G QD TRANSPLACENTAL), (750 MG QD TRANSPLACENTAL)
     Route: 064
     Dates: start: 19930422, end: 19940105
  3. ENALAPRIL MALEATE [Suspect]
     Indication: ESSENTIAL HYPERTENSION
     Dosage: (20 MG QD TRANSPLACENTAL)
     Route: 064
     Dates: start: 19921217, end: 19930422
  4. TENORMIN [Suspect]
     Indication: PRODUCT USED FOR UNKNOWN INDICATION
     Dosage: (50 MG QD)
     Dates: end: 19930819

REACTIONS (2)
  - VENTRICULAR SEPTAL DEFECT [None]
  - MATERNAL DRUGS AFFECTING FOETUS [None]
